FAERS Safety Report 6878608-3 (Version None)
Quarter: 2010Q3

REPORT INFORMATION
  Report Type: 
  Country: None (occurrence: None)
  Receive Date: 20100728
  Receipt Date: 20100716
  Transmission Date: 20110219
  Serious: Yes (Death)
  Sender: FDA-Public Use
  Company Number: A0866592A

PATIENT
  Sex: Male
  Weight: 109.1 kg

DRUGS (10)
  1. AVANDIA [Suspect]
     Indication: DIABETES MELLITUS
     Dosage: 4MG UNKNOWN
     Route: 048
  2. AVANDAMET [Suspect]
     Indication: DIABETES MELLITUS
     Route: 048
     Dates: end: 20090102
  3. AMARYL [Concomitant]
     Indication: DIABETES MELLITUS
     Dosage: 4MG UNKNOWN
     Route: 048
     Dates: start: 20030401
  4. EXFORGE [Concomitant]
  5. CRESTOR [Concomitant]
  6. VIAGRA [Concomitant]
  7. GLIMEPIRIDE [Concomitant]
  8. LISINOPRIL [Concomitant]
  9. GABAPENTIN [Concomitant]
  10. FLEXERIL [Concomitant]

REACTIONS (3)
  - CORONARY ARTERY DISEASE [None]
  - HYPERTENSIVE HEART DISEASE [None]
  - PAIN IN EXTREMITY [None]
